FAERS Safety Report 21734014 (Version 3)
Quarter: 2024Q2

REPORT INFORMATION
  Report Type: Report from Study
  Country: DE (occurrence: DE)
  Receive Date: 20221215
  Receipt Date: 20240625
  Transmission Date: 20240716
  Serious: Yes (Other)
  Sender: FDA-Public Use
  Company Number: DE-PFM-2022-02152

PATIENT

DRUGS (7)
  1. NERATINIB [Suspect]
     Active Substance: NERATINIB
     Indication: Breast cancer
     Dosage: 200 MG PER DAY
     Route: 048
     Dates: start: 20220209
  2. NERATINIB [Suspect]
     Active Substance: NERATINIB
     Dosage: UNK
     Route: 048
     Dates: start: 20220215
  3. NERATINIB [Suspect]
     Active Substance: NERATINIB
     Dosage: UNK
     Route: 048
     Dates: start: 20220727, end: 20230204
  4. LEVOTHYROXINE SODIUM [Concomitant]
     Active Substance: LEVOTHYROXINE SODIUM
     Indication: Autoimmune thyroiditis
     Dosage: 75 MG EVERY OTHER DAY
     Route: 048
     Dates: start: 1988
  5. LEVOTHYROXINE SODIUM [Concomitant]
     Active Substance: LEVOTHYROXINE SODIUM
     Dosage: 100 MG,EVERY OTHER DAY
     Route: 048
     Dates: start: 1988
  6. TAMOXIFEN [Suspect]
     Active Substance: TAMOXIFEN
     Indication: Breast cancer
     Dosage: UNK
     Route: 065
     Dates: start: 202104
  7. LEUPROLIDE ACETATE [Concomitant]
     Active Substance: ISOPROPYL ALCOHOL\LEUPROLIDE ACETATE
     Indication: Breast cancer
     Dosage: UNK
     Route: 065
     Dates: start: 202104

REACTIONS (11)
  - Hyperkalaemia [Recovered/Resolved]
  - Diarrhoea [Recovered/Resolved]
  - Skin disorder [Recovered/Resolved]
  - Nausea [Recovering/Resolving]
  - Vomiting [Recovered/Resolved]
  - Muscle spasms [Recovering/Resolving]
  - Constipation [Not Recovered/Not Resolved]
  - Herpes virus infection [Recovered/Resolved]
  - COVID-19 [Recovered/Resolved]
  - Product use issue [Unknown]
  - Off label use [Unknown]

NARRATIVE: CASE EVENT DATE: 20220210
